FAERS Safety Report 10404558 (Version 1)
Quarter: 2014Q2

REPORT INFORMATION
  Report Type: Spontaneous
  Country: US (occurrence: None)
  Receive Date: 20140514
  Receipt Date: 20140514
  Transmission Date: 20141212
  Serious: Yes (Hospitalization, Other)
  Sender: FDA-Public Use
  Company Number: 087000

PATIENT
  Sex: Male

DRUGS (1)
  1. CIMZIA [Suspect]
     Indication: CROHN^S DISEASE
     Dosage: 200MG 1X/2 WEEKS, EXP DATE:??-FEB-2016, ??-MAR-2016)?(02/23/2010 TO 01-09-2014)
     Dates: start: 20100223, end: 20140109

REACTIONS (3)
  - Intestinal obstruction [None]
  - Inappropriate schedule of drug administration [None]
  - Drug ineffective [None]
